FAERS Safety Report 10403184 (Version 1)
Quarter: 2014Q3

REPORT INFORMATION
  Report Type: Spontaneous
  Country: CA (occurrence: CA)
  Receive Date: 20140822
  Receipt Date: 20140822
  Transmission Date: 20150326
  Serious: Yes (Other)
  Sender: FDA-Public Use
  Company Number: CA-SA-2014SA110872

PATIENT
  Sex: Male

DRUGS (1)
  1. SELSUN [Suspect]
     Active Substance: SELENIUM SULFIDE
     Indication: GENITAL INFECTION FUNGAL
     Dosage: ON GENITAL AREA

REACTIONS (6)
  - Application site pain [None]
  - Skin disorder [None]
  - Erythema [Not Recovered/Not Resolved]
  - Application site erythema [None]
  - Chemical injury [Not Recovered/Not Resolved]
  - Pain [Not Recovered/Not Resolved]
